FAERS Safety Report 25833854 (Version 1)
Quarter: 2025Q3

REPORT INFORMATION
  Report Type: Other
  Country: GB (occurrence: GB)
  Receive Date: 20250923
  Receipt Date: 20250923
  Transmission Date: 20251020
  Serious: Yes (Other)
  Sender: IPCA
  Company Number: GB-MHRA-TPP38000122C10718429YC1757411150477

PATIENT

DRUGS (24)
  1. METFORMIN [Suspect]
     Active Substance: METFORMIN HYDROCHLORIDE
     Indication: Ill-defined disorder
     Route: 065
     Dates: start: 20250827
  2. AMLODIPINE [Concomitant]
     Active Substance: AMLODIPINE BESYLATE
     Indication: Ill-defined disorder
     Route: 065
     Dates: start: 20240517
  3. UMECLIDINIUM BROMIDE\VILANTEROL TRIFENATATE [Concomitant]
     Active Substance: UMECLIDINIUM BROMIDE\VILANTEROL TRIFENATATE
     Indication: Ill-defined disorder
     Dates: start: 20240517
  4. APIXABAN [Concomitant]
     Active Substance: APIXABAN
     Indication: Ill-defined disorder
     Route: 065
     Dates: start: 20240517
  5. BD AUTOSHIELD DUO [Concomitant]
     Indication: Ill-defined disorder
     Route: 065
     Dates: start: 20240517
  6. CETIRIZINE [Concomitant]
     Active Substance: CETIRIZINE HYDROCHLORIDE
     Indication: Ill-defined disorder
     Route: 065
     Dates: start: 20240517
  7. EZETIMIBE [Concomitant]
     Active Substance: EZETIMIBE
     Indication: Blood cholesterol
     Route: 065
     Dates: start: 20240517
  8. FENBID [Concomitant]
     Indication: Ill-defined disorder
     Route: 061
     Dates: start: 20240517
  9. LANTUS [Concomitant]
     Active Substance: INSULIN GLARGINE
     Indication: Ill-defined disorder
     Route: 058
     Dates: start: 20240517
  10. LEVOTHYROXINE [Concomitant]
     Active Substance: LEVOTHYROXINE
     Indication: Ill-defined disorder
     Route: 065
     Dates: start: 20240517
  11. LOSARTAN [Concomitant]
     Active Substance: LOSARTAN
     Indication: Ill-defined disorder
     Route: 065
     Dates: start: 20240517
  12. MACROGOL COMPOUND [Concomitant]
     Indication: Ill-defined disorder
     Route: 065
     Dates: start: 20240517
  13. NOVORAPID [Concomitant]
     Active Substance: INSULIN ASPART
     Indication: Ill-defined disorder
     Route: 065
     Dates: start: 20240517
  14. OMEPRAZOLE [Concomitant]
     Active Substance: OMEPRAZOLE
     Indication: Ill-defined disorder
     Dates: start: 20240517
  15. ACETAMINOPHEN [Concomitant]
     Active Substance: ACETAMINOPHEN
     Indication: Ill-defined disorder
     Route: 065
     Dates: start: 20240517
  16. ROSUVASTATIN [Concomitant]
     Active Substance: ROSUVASTATIN
     Indication: Ill-defined disorder
     Route: 065
     Dates: start: 20240517
  17. ALBUTEROL [Concomitant]
     Active Substance: ALBUTEROL
     Indication: Ill-defined disorder
     Dates: start: 20240517
  18. SENNA [Concomitant]
     Active Substance: SENNOSIDES
     Indication: Ill-defined disorder
     Route: 065
     Dates: start: 20240517, end: 20250827
  19. SHARPSGUARD [Concomitant]
     Indication: Ill-defined disorder
     Route: 065
     Dates: start: 20240517
  20. SILDENAFIL [Concomitant]
     Active Substance: SILDENAFIL
     Indication: Ill-defined disorder
     Route: 065
     Dates: start: 20240517
  21. TRAMADOL [Concomitant]
     Active Substance: TRAMADOL
     Indication: Ill-defined disorder
     Dates: start: 20240517
  22. TRUE METRIX [Concomitant]
     Indication: Ill-defined disorder
     Route: 065
     Dates: start: 20240517
  23. TRUEPLUS [Concomitant]
     Indication: Ill-defined disorder
     Route: 065
     Dates: start: 20240517
  24. DOXAZOSIN [Concomitant]
     Active Substance: DOXAZOSIN MESYLATE
     Indication: Ill-defined disorder
     Route: 065
     Dates: start: 20240626

REACTIONS (1)
  - Constipation [Recovered/Resolved]
